FAERS Safety Report 21469669 (Version 1)
Quarter: 2022Q4

REPORT INFORMATION
  Report Type: Spontaneous
  Country: US (occurrence: US)
  Receive Date: 20221018
  Receipt Date: 20221018
  Transmission Date: 20230113
  Serious: No
  Sender: FDA-Public Use
  Company Number: US-ADAMAS PHARMA, LLC-2021ADA03161

PATIENT
  Age: 69 Year
  Sex: Female

DRUGS (18)
  1. GOCOVRI [Suspect]
     Active Substance: AMANTADINE
     Indication: Dyskinesia
     Dosage: 274 MG, 1X/DAY EVERY NIGHT AT BEDTIME
     Route: 048
     Dates: start: 20211208, end: 202112
  2. ALIGN [Concomitant]
     Active Substance: BIFIDOBACTERIUM LONGUM SUBSP. INFANTIS
  3. ATENOLOL [Concomitant]
     Active Substance: ATENOLOL
  4. ATENOLOL [Concomitant]
     Active Substance: ATENOLOL
  5. DILTIAZEM [Concomitant]
     Active Substance: DILTIAZEM
  6. ELIQUIS [Concomitant]
     Active Substance: APIXABAN
  7. ESTRADIOL [Concomitant]
     Active Substance: ESTRADIOL
  8. EZETIMIBE [Concomitant]
     Active Substance: EZETIMIBE
  9. MAGNESIUM OXIDE [Concomitant]
     Active Substance: MAGNESIUM OXIDE
  10. MIDODRINE [Concomitant]
     Active Substance: MIDODRINE
  11. MIDODRINE [Concomitant]
     Active Substance: MIDODRINE
  12. MYRBETRIQ [Concomitant]
     Active Substance: MIRABEGRON
  13. PEPCID COMPLETE [Concomitant]
     Active Substance: CALCIUM CARBONATE\FAMOTIDINE\MAGNESIUM HYDROXIDE
  14. ROSUVASTATIN [Concomitant]
     Active Substance: ROSUVASTATIN
  15. TRIAMCINOLONE [Concomitant]
     Active Substance: TRIAMCINOLONE
  16. TRIMETHOPRIM [Concomitant]
     Active Substance: TRIMETHOPRIM
  17. VENLAFAXINE [Concomitant]
     Active Substance: VENLAFAXINE HYDROCHLORIDE
  18. LEVODOPA [Concomitant]
     Active Substance: LEVODOPA

REACTIONS (7)
  - Oropharyngeal pain [Unknown]
  - Glossodynia [Unknown]
  - Visual impairment [Not Recovered/Not Resolved]
  - Syncope [Unknown]
  - Dizziness [Unknown]
  - Hypotension [Unknown]
  - Vomiting [Not Recovered/Not Resolved]

NARRATIVE: CASE EVENT DATE: 20211201
